FAERS Safety Report 24913241 (Version 2)
Quarter: 2025Q1

REPORT INFORMATION
  Report Type: Spontaneous
  Country: US (occurrence: US)
  Receive Date: 20250201
  Receipt Date: 20250218
  Transmission Date: 20250408
  Serious: Yes (Death, Other)
  Sender: HETERO
  Company Number: US-BMS-IMIDS-REMS_SI-12350127

PATIENT
  Sex: Male
  Weight: 77 kg

DRUGS (1)
  1. LENALIDOMIDE [Suspect]
     Active Substance: LENALIDOMIDE
     Indication: 5q minus syndrome
     Route: 048
     Dates: start: 20241220, end: 20241230

REACTIONS (1)
  - Death [Fatal]
